FAERS Safety Report 21697108 (Version 1)
Quarter: 2022Q4

REPORT INFORMATION
  Report Type: Spontaneous
  Country: ES (occurrence: ES)
  Receive Date: 20221208
  Receipt Date: 20221208
  Transmission Date: 20230113
  Serious: Yes (Hospitalization)
  Sender: FDA-Public Use
  Company Number: None

PATIENT
  Age: 66 Year
  Sex: Female

DRUGS (3)
  1. COBICISTAT\DARUNAVIR ETHANOLATE [Suspect]
     Active Substance: COBICISTAT\DARUNAVIR ETHANOLATE
     Indication: HIV test positive
     Dosage: 1 COMPRIMIDO AL DIA
     Route: 048
     Dates: start: 20160127, end: 20221107
  2. CRESTOR [Suspect]
     Active Substance: ROSUVASTATIN CALCIUM
     Indication: Product used for unknown indication
     Route: 048
     Dates: start: 20220825, end: 20221105
  3. EZETIMIBE\ROSUVASTATIN ZINC [Suspect]
     Active Substance: EZETIMIBE\ROSUVASTATIN ZINC
     Indication: Hypercholesterolaemia
     Dosage: 1 COMPRIMIDO AL DIA
     Route: 048
     Dates: start: 20190311, end: 20221105

REACTIONS (2)
  - Hepatitis acute [Recovering/Resolving]
  - Rhabdomyolysis [Recovering/Resolving]

NARRATIVE: CASE EVENT DATE: 20221020
